FAERS Safety Report 9154079 (Version 1)
Quarter: 2013Q1

REPORT INFORMATION
  Report Type: Spontaneous
  Country: US (occurrence: None)
  Receive Date: 20130211
  Receipt Date: 20130211
  Transmission Date: 20140127
  Serious: Yes (Hospitalization)
  Sender: FDA-Public Use
  Company Number: 2013AP001908

PATIENT
  Age: 18 Year
  Sex: Female

DRUGS (12)
  1. OMEPRAZOLE [Suspect]
  2. ESOMEPRAZOLE [Suspect]
  3. TACROLIMUS [Suspect]
  4. LANSOPRAZOLE [Concomitant]
  5. MYCOPHENOLATE [Concomitant]
  6. PRESNISONE [Concomitant]
  7. COTRIMOXAZOLE [Concomitant]
  8. VALGANCICLOVIR [Concomitant]
  9. CARVEDILOL [Concomitant]
  10. AZITHROMYCIN [Concomitant]
  11. CEFDINIR [Concomitant]
  12. CEFDINIR [Concomitant]

REACTIONS (7)
  - Drug level increased [None]
  - Fatigue [None]
  - Sinusitis [None]
  - Nausea [None]
  - Vomiting [None]
  - Blood creatinine increased [None]
  - Drug interaction [None]
